FAERS Safety Report 17597932 (Version 1)
Quarter: 2020Q1

REPORT INFORMATION
  Report Type: Spontaneous
  Country: US (occurrence: US)
  Receive Date: 20200330
  Receipt Date: 20200330
  Transmission Date: 20200409
  Serious: Yes (Other)
  Sender: FDA-Public Use
  Company Number: US-GLAXOSMITHKLINE-US2020054145

PATIENT
  Age: 40 Year
  Sex: Female

DRUGS (4)
  1. PREDNISONE. [Suspect]
     Active Substance: PREDNISONE
     Indication: PRODUCT USED FOR UNKNOWN INDICATION
     Dosage: UNK
     Route: 065
  2. BENLYSTA [Suspect]
     Active Substance: BELIMUMAB
     Indication: SYSTEMIC LUPUS ERYTHEMATOSUS
     Dosage: UNK
     Route: 042
     Dates: start: 20200207
  3. TYLENOL [Suspect]
     Active Substance: ACETAMINOPHEN
     Indication: PAIN
     Dosage: UNK
     Route: 065
  4. BENADRYL [Suspect]
     Active Substance: DIPHENHYDRAMINE HYDROCHLORIDE
     Indication: HYPERSENSITIVITY
     Dosage: UNK
     Route: 065

REACTIONS (26)
  - Tremor [Unknown]
  - Rash [Unknown]
  - Pain in extremity [Unknown]
  - Limb discomfort [Unknown]
  - Vision blurred [Unknown]
  - Headache [Unknown]
  - Adnexa uteri pain [Unknown]
  - Joint swelling [Unknown]
  - Confusional state [Unknown]
  - Ulcer haemorrhage [Unknown]
  - Hypoaesthesia [Unknown]
  - Rhinorrhoea [Unknown]
  - Oral discomfort [Unknown]
  - Gait disturbance [Unknown]
  - Skin haemorrhage [Unknown]
  - Stomatitis [Unknown]
  - Localised infection [Unknown]
  - Feeling cold [Unknown]
  - Weight decreased [Unknown]
  - Menstrual disorder [Unknown]
  - Skin discolouration [Unknown]
  - Arthralgia [Unknown]
  - Abdominal pain upper [Unknown]
  - Concomitant disease aggravated [Unknown]
  - Menorrhagia [Unknown]
  - Ocular discomfort [Unknown]

NARRATIVE: CASE EVENT DATE: 2020
